FAERS Safety Report 6862296-6 (Version None)
Quarter: 2010Q3

REPORT INFORMATION
  Report Type: 
  Country: None (occurrence: None)
  Receive Date: 20100721
  Receipt Date: 20100715
  Transmission Date: 20110219
  Serious: Yes (Disabling)
  Sender: FDA-Public Use
  Company Number: JP-BRISTOL-MYERS SQUIBB COMPANY-15201312

PATIENT
  Age: 65 Year
  Sex: Male

DRUGS (4)
  1. AVAPRO [Suspect]
     Route: 048
  2. AMLODIN [Concomitant]
  3. LIVALO [Concomitant]
  4. ARTIST [Concomitant]

REACTIONS (1)
  - CEREBRAL INFARCTION [None]
